FAERS Safety Report 19810631 (Version 4)
Quarter: 2022Q1

REPORT INFORMATION
  Report Type: Spontaneous
  Country: AU (occurrence: AU)
  Receive Date: 20210909
  Receipt Date: 20220128
  Transmission Date: 20220423
  Serious: Yes (Other)
  Sender: FDA-Public Use
  Company Number: AU-TAKEDA-2021TUS054448

PATIENT
  Age: 62 Year
  Sex: Male

DRUGS (12)
  1. PANTOPRAZOLE [Suspect]
     Active Substance: PANTOPRAZOLE
     Indication: Chronic graft versus host disease
     Dosage: UNK
     Route: 065
  2. BISOPROLOL FUMARATE [Suspect]
     Active Substance: BISOPROLOL FUMARATE
     Indication: Chronic graft versus host disease
     Dosage: UNK
     Route: 065
  3. MIRTAZAPINE [Suspect]
     Active Substance: MIRTAZAPINE
     Indication: Chronic graft versus host disease
     Dosage: UNK
     Route: 065
  4. ETANERCEPT [Suspect]
     Active Substance: ETANERCEPT
     Indication: Chronic graft versus host disease
     Dosage: UNK
     Route: 065
  5. ATORVASTATIN CALCIUM [Suspect]
     Active Substance: ATORVASTATIN CALCIUM
     Dosage: UNK
     Route: 065
  6. CALCIUM CARBONATE [Suspect]
     Active Substance: CALCIUM CARBONATE
     Indication: Chronic graft versus host disease
     Dosage: UNK
     Route: 065
  7. ENTYVIO [Suspect]
     Active Substance: VEDOLIZUMAB
     Indication: Chronic graft versus host disease
     Dosage: UNK
     Route: 065
  8. ASPIRIN [Suspect]
     Active Substance: ASPIRIN
     Indication: Prophylaxis
     Dosage: 100 MG
     Route: 065
     Dates: start: 2002
  9. CYCLOSPORINE [Suspect]
     Active Substance: CYCLOSPORINE
     Indication: Chronic graft versus host disease
     Dosage: UNK
     Route: 065
  10. MYCOPHENOLATE MOFETIL [Suspect]
     Active Substance: MYCOPHENOLATE MOFETIL
     Indication: Chronic graft versus host disease
     Dosage: UNK
     Route: 065
  11. ERGOCALCIFEROL [Suspect]
     Active Substance: ERGOCALCIFEROL
     Dosage: UNK
     Route: 065
  12. PREDNISONE [Suspect]
     Active Substance: PREDNISONE
     Indication: Chronic graft versus host disease
     Dosage: UNK
     Route: 065

REACTIONS (4)
  - Eastern Cooperative Oncology Group performance status worsened [Not Recovered/Not Resolved]
  - Disease progression [Unknown]
  - Platelet count increased [Unknown]
  - Off label use [Unknown]
